FAERS Safety Report 10586122 (Version 4)
Quarter: 2015Q1

REPORT INFORMATION
  Report Type: Spontaneous
  Country: RS (occurrence: RS)
  Receive Date: 20141115
  Receipt Date: 20150105
  Transmission Date: 20150720
  Serious: Yes (Hospitalization, Other)
  Sender: FDA-Public Use
  Company Number: RS-SA-2014SA151969

PATIENT
  Age: 76 Year
  Sex: Male
  Weight: 74 kg

DRUGS (6)
  1. RANITIDINE [Suspect]
     Active Substance: RANITIDINE\RANITIDINE HYDROCHLORIDE
     Route: 065
     Dates: start: 20141014
  2. FARIN [Suspect]
     Active Substance: WARFARIN
     Route: 065
     Dates: start: 20141014
  3. DIGOXIN. [Suspect]
     Active Substance: DIGOXIN
     Route: 065
     Dates: start: 20141014
  4. METOCLOPRAMIDE HYDROCHLORIDE. [Suspect]
     Active Substance: METOCLOPRAMIDE HYDROCHLORIDE
     Route: 065
     Dates: start: 20141014, end: 20141014
  5. WARFARIN [Suspect]
     Active Substance: WARFARIN
     Indication: HEART RATE IRREGULAR
     Route: 065
     Dates: start: 201406
  6. LASIX [Suspect]
     Active Substance: FUROSEMIDE
     Route: 065
     Dates: start: 20141014

REACTIONS (1)
  - Gastric cancer [Not Recovered/Not Resolved]

NARRATIVE: CASE EVENT DATE: 20141014
